FAERS Safety Report 4824623-0 (Version None)
Quarter: 2005Q4

REPORT INFORMATION
  Report Type: 
  Country: None (occurrence: None)
  Receive Date: 20051108
  Receipt Date: 20051031
  Transmission Date: 20060501
  Serious: Yes (Other)
  Sender: FDA-Public Use
  Company Number: 2005149709

PATIENT
  Sex: Female
  Weight: 71 kg

DRUGS (1)
  1. EXEMESTANE [Suspect]
     Indication: BREAST CANCER METASTATIC
     Dosage: 25 MG, ORAL
     Route: 048
     Dates: start: 20050914, end: 20050914

REACTIONS (1)
  - ERYTHEMA MULTIFORME [None]
